FAERS Safety Report 4309770-4 (Version None)
Quarter: 2004Q1

REPORT INFORMATION
  Report Type: 
  Country: None (occurrence: None)
  Receive Date: 20040301
  Receipt Date: 20030918
  Transmission Date: 20041129
  Serious: Yes (Hospitalization)
  Sender: FDA-Public Use
  Company Number: US_030997741

PATIENT
  Sex: Female

DRUGS (1)
  1. PERMAX [Suspect]
     Indication: TREMOR
     Dates: start: 20011212

REACTIONS (2)
  - CARDIAC FAILURE CONGESTIVE [None]
  - CARDIAC VALVE DISEASE [None]
